FAERS Safety Report 5670677-1 (Version None)
Quarter: 2008Q1

REPORT INFORMATION
  Report Type: 
  Country: None (occurrence: None)
  Receive Date: 20080318
  Receipt Date: 20080305
  Transmission Date: 20080703
  Serious: Yes (Death)
  Sender: FDA-Public Use
  Company Number: CA-GENENTECH-257507

PATIENT
  Sex: Female

DRUGS (1)
  1. AVASTIN [Suspect]
     Indication: LEIOMYOSARCOMA METASTATIC
     Dosage: 1100 MG, Q3W
     Route: 042
     Dates: start: 20070424, end: 20070901

REACTIONS (1)
  - DEATH [None]
